FAERS Safety Report 9942305 (Version 1)
Quarter: 2014Q1

REPORT INFORMATION
  Report Type: Spontaneous
  Country: US (occurrence: US)
  Receive Date: 20140303
  Receipt Date: 20140303
  Transmission Date: 20141002
  Serious: Yes (Hospitalization)
  Sender: FDA-Public Use
  Company Number: US-ROXANE LABORATORIES, INC.-2014-RO-00330RO

PATIENT
  Age: 32 Year
  Sex: Male

DRUGS (5)
  1. LITHIUM CARBONATE [Suspect]
     Indication: SCHIZOAFFECTIVE DISORDER
     Dosage: 1200 MG
     Route: 048
  2. RISPERDAL [Concomitant]
     Dosage: 6 MG
     Route: 065
  3. COGENTIN [Concomitant]
     Dosage: 4 MG
     Route: 065
  4. KLONOPIN [Concomitant]
     Dosage: 1 MG
     Route: 065
  5. LISINOPRIL/HCTZ [Concomitant]
     Indication: HYPERTENSION
     Route: 065

REACTIONS (1)
  - Toxicity to various agents [Recovered/Resolved]
